FAERS Safety Report 24091508 (Version 1)
Quarter: 2024Q3

REPORT INFORMATION
  Report Type: Spontaneous
  Country: CN (occurrence: CN)
  Receive Date: 20240715
  Receipt Date: 20240715
  Transmission Date: 20241016
  Serious: Yes (Hospitalization, Other)
  Sender: SANOFI AVENTIS
  Company Number: CN-SA-SAC20240710000691

PATIENT
  Age: 54 Year
  Sex: Female
  Weight: 57 kg

DRUGS (2)
  1. DOCETAXEL [Suspect]
     Active Substance: DOCETAXEL\DOCETAXEL ANHYDROUS
     Indication: Breast cancer
     Dosage: 120 MG, QD
     Route: 041
     Dates: start: 20240620, end: 20240620
  2. CARBOPLATIN [Suspect]
     Active Substance: CARBOPLATIN
     Indication: Breast cancer
     Dosage: 0.6 G, QD
     Route: 041
     Dates: start: 20240620, end: 20240620

REACTIONS (2)
  - Agranulocytosis [Recovering/Resolving]
  - Hepatic failure [Recovering/Resolving]

NARRATIVE: CASE EVENT DATE: 20240628
